FAERS Safety Report 4800191-4 (Version None)
Quarter: 2005Q4

REPORT INFORMATION
  Report Type: 
  Country: None (occurrence: None)
  Receive Date: 20051017
  Receipt Date: 20051006
  Transmission Date: 20060501
  Serious: Yes (Death, Other)
  Sender: FDA-Public Use
  Company Number: JP-JNJFOC-20050400680

PATIENT
  Sex: Male

DRUGS (18)
  1. LEUSTATIN [Suspect]
     Route: 041
  2. LEUSTATIN [Suspect]
     Route: 041
  3. LEUSTATIN [Suspect]
     Route: 041
  4. LEUSTATIN [Suspect]
     Route: 041
  5. RITUXIMAB [Suspect]
  6. RITUXIMAB [Suspect]
  7. RITUXIMAB [Suspect]
  8. RITUXIMAB [Suspect]
  9. CYCLOPHOSPHAMIDE [Suspect]
  10. CYCLOPHOSPHAMIDE [Suspect]
  11. CYCLOPHOSPHAMIDE [Suspect]
  12. PREDNISONE [Concomitant]
     Route: 048
  13. PREDNISONE [Concomitant]
     Route: 048
  14. PREDNISONE [Concomitant]
     Route: 048
  15. PREDNISONE [Concomitant]
     Route: 048
  16. FILGRASTIM [Concomitant]
     Route: 058
  17. FILGRASTIM [Concomitant]
     Route: 058
  18. FILGRASTIM [Concomitant]
     Route: 058

REACTIONS (10)
  - ADENOVIRUS INFECTION [None]
  - ANAEMIA [None]
  - BLOOD ALBUMIN DECREASED [None]
  - BLOOD UREA INCREASED [None]
  - HEPATOCELLULAR DAMAGE [None]
  - NEUTROPHIL COUNT DECREASED [None]
  - PLATELET COUNT DECREASED [None]
  - PROTEIN TOTAL DECREASED [None]
  - URETERIC STENOSIS [None]
  - WHITE BLOOD CELL COUNT DECREASED [None]
